FAERS Safety Report 8986057 (Version 2)
Quarter: 2013Q1

REPORT INFORMATION
  Report Type: Spontaneous
  Country: US (occurrence: None)
  Receive Date: 20121218
  Receipt Date: 20130212
  Transmission Date: 20140127
  Serious: Yes (Death)
  Sender: FDA-Public Use
  Company Number: ADR-2012-02242

PATIENT
  Age: 57 Year
  Sex: Male

DRUGS (5)
  1. BACLOFEN INTRATHECAL [Suspect]
     Indication: CANCER PAIN
  2. BUPIVACAINE [Concomitant]
  3. DILAUDID (HYDROMORPHONE) [Concomitant]
  4. DROPERIDOL [Concomitant]
  5. CLONIDINE [Suspect]

REACTIONS (1)
  - Testis cancer [None]
